FAERS Safety Report 21203146 (Version 2)
Quarter: 2022Q3

REPORT INFORMATION
  Report Type: Spontaneous
  Country: US (occurrence: None)
  Receive Date: 20220811
  Receipt Date: 20220906
  Transmission Date: 20221027
  Serious: Yes (Other)
  Sender: FDA-Public Use
  Company Number: 2022A277080

PATIENT
  Age: 1083 Month
  Sex: Female

DRUGS (2)
  1. BUDESONIDE\FORMOTEROL\GLYCOPYRRONIUM [Suspect]
     Active Substance: BUDESONIDE\FORMOTEROL\GLYCOPYRRONIUM
     Indication: Pulmonary congestion
     Dosage: 2 INHALATIONS 2 TIMES A DAY
     Route: 055
     Dates: start: 2022
  2. BUDESONIDE\FORMOTEROL\GLYCOPYRRONIUM [Suspect]
     Active Substance: BUDESONIDE\FORMOTEROL\GLYCOPYRRONIUM
     Indication: Pulmonary congestion
     Dosage: 1 PUFF IN THE MORNING AND 1 PUFF AT NIGHT
     Route: 055
     Dates: start: 2022

REACTIONS (4)
  - Blindness [Unknown]
  - Aphonia [Recovered/Resolved]
  - Product use in unapproved indication [Unknown]
  - Intentional product misuse [Unknown]

NARRATIVE: CASE EVENT DATE: 20220101
